FAERS Safety Report 6242116-3 (Version None)
Quarter: 2009Q2

REPORT INFORMATION
  Report Type: 
  Country: None (occurrence: None)
  Receive Date: 20090624
  Receipt Date: 20090622
  Transmission Date: 20091009
  Serious: Yes (Other)
  Sender: FDA-Public Use
  Company Number: US-SP-2009-01674

PATIENT
  Age: 40 Year
  Sex: Female

DRUGS (1)
  1. TUBERSOL [Suspect]
     Indication: TUBERCULIN TEST
     Route: 023
     Dates: start: 20090417

REACTIONS (4)
  - HYPERSENSITIVITY [None]
  - INJECTION SITE RASH [None]
  - PRURITUS [None]
  - RASH [None]
